FAERS Safety Report 9747592 (Version 1)
Quarter: 2013Q4

REPORT INFORMATION
  Report Type: Spontaneous
  Country: US (occurrence: None)
  Receive Date: 20131211
  Receipt Date: 20131211
  Transmission Date: 20140711
  Serious: Yes (Disabling)
  Sender: FDA-Public Use
  Company Number: None

PATIENT
  Sex: Female
  Weight: 100.25 kg

DRUGS (1)
  1. CARBAMAZEPINE [Suspect]
     Dates: start: 201302

REACTIONS (3)
  - Compulsive lip biting [None]
  - Gait disturbance [None]
  - Unevaluable event [None]
